FAERS Safety Report 6200159-X (Version None)
Quarter: 2009Q2

REPORT INFORMATION
  Report Type: 
  Country: None (occurrence: None)
  Receive Date: 20090522
  Receipt Date: 20090520
  Transmission Date: 20091009
  Serious: Yes (Other)
  Sender: FDA-Public Use
  Company Number: DE-BRISTOL-MYERS SQUIBB COMPANY-14624894

PATIENT
  Age: 56 Year
  Sex: Male
  Weight: 70 kg

DRUGS (4)
  1. SUSTIVA [Suspect]
     Indication: HIV INFECTION
     Route: 048
     Dates: start: 20081121
  2. TRUVADA [Suspect]
     Indication: HIV INFECTION
     Dosage: TRUVADA 300/200MG
     Route: 048
     Dates: start: 20081121
  3. PENTACARINAT [Concomitant]
     Indication: PROPHYLAXIS
     Route: 055
     Dates: start: 20081125
  4. TRIMIPRAMINE MALEATE [Concomitant]
     Indication: NIGHTMARE
     Dosage: TABLET FORM
     Route: 048
     Dates: start: 20080101

REACTIONS (2)
  - DRUG RESISTANCE [None]
  - NIGHTMARE [None]
